FAERS Safety Report 19694309 (Version 12)
Quarter: 2022Q2

REPORT INFORMATION
  Report Type: Report from Study
  Country: DE (occurrence: DE)
  Receive Date: 20210813
  Receipt Date: 20220401
  Transmission Date: 20220721
  Serious: Yes (Hospitalization)
  Sender: FDA-Public Use
  Company Number: US-INSMED, INC.-2021-08795-DE

PATIENT
  Age: 59 Year
  Sex: Female

DRUGS (1)
  1. ARIKAYCE [Suspect]
     Active Substance: AMIKACIN
     Indication: Mycobacterial infection
     Dosage: 590 MILLIGRAM, QD
     Route: 055
     Dates: start: 20210616, end: 20220211

REACTIONS (31)
  - Hospitalisation [Unknown]
  - Hyperhidrosis [Recovered/Resolved]
  - Back pain [Recovered/Resolved]
  - Vomiting [Recovered/Resolved]
  - Nausea [Recovered/Resolved]
  - Fatigue [Not Recovered/Not Resolved]
  - Dyspnoea [Not Recovered/Not Resolved]
  - Nasopharyngitis [Recovered/Resolved]
  - Depression [Recovering/Resolving]
  - COVID-19 [Recovered/Resolved]
  - Hypotension [Recovered/Resolved]
  - Circulatory collapse [Recovered/Resolved]
  - Palpitations [Recovered/Resolved]
  - Sputum discoloured [Recovered/Resolved]
  - Sputum increased [Not Recovered/Not Resolved]
  - Dysgeusia [Recovered/Resolved]
  - Weight decreased [Recovering/Resolving]
  - Throat irritation [Not Recovered/Not Resolved]
  - Productive cough [Not Recovered/Not Resolved]
  - Retching [Not Recovered/Not Resolved]
  - Cough [Recovered/Resolved]
  - Cough [Recovered/Resolved]
  - Cough [Not Recovered/Not Resolved]
  - Oropharyngeal discomfort [Recovered/Resolved]
  - Diarrhoea [Not Recovered/Not Resolved]
  - Dizziness [Not Recovered/Not Resolved]
  - Drug ineffective [Unknown]
  - Incorrect dose administered [Unknown]
  - Device issue [Unknown]
  - Drug dose omission by device [Unknown]
  - Inappropriate schedule of product administration [Unknown]

NARRATIVE: CASE EVENT DATE: 20210101
